FAERS Safety Report 10207577 (Version 1)
Quarter: 2014Q2

REPORT INFORMATION
  Report Type: Spontaneous
  Country: US (occurrence: US)
  Receive Date: 20140530
  Receipt Date: 20140530
  Transmission Date: 20141212
  Serious: No
  Sender: FDA-Public Use
  Company Number: US-GLAXOSMITHKLINE-A1050626A

PATIENT
  Sex: Male

DRUGS (5)
  1. VENTOLIN [Suspect]
     Indication: CHRONIC OBSTRUCTIVE PULMONARY DISEASE
     Dosage: 5PUFF SEVEN TIMES PER DAY
     Route: 055
  2. LISINOPRIL [Concomitant]
  3. ASPIRIN [Concomitant]
  4. MUCINEX [Concomitant]
  5. MOUTHWASH [Concomitant]

REACTIONS (2)
  - Dyspnoea exertional [Not Recovered/Not Resolved]
  - Overdose [Unknown]
